FAERS Safety Report 11055552 (Version 1)
Quarter: 2015Q2

REPORT INFORMATION
  Report Type: Spontaneous
  Country: US (occurrence: US)
  Receive Date: 20150422
  Receipt Date: 20150422
  Transmission Date: 20150821
  Serious: No
  Sender: FDA-Public Use
  Company Number: US-PFIZER INC-2015134087

PATIENT
  Sex: Male

DRUGS (3)
  1. INLYTA [Suspect]
     Active Substance: AXITINIB
     Dosage: 9 MG, DAILY (4 MG IN THE MORNING AND 5 MG IN THE EVENING)
  2. INLYTA [Suspect]
     Active Substance: AXITINIB
     Dosage: UNK, (3 MG AND 5 MG)
  3. INLYTA [Suspect]
     Active Substance: AXITINIB
     Dosage: 5 MG, 2X/DAY (5MG IN THE MORNING AND 5 MG IN THE EVENING)

REACTIONS (1)
  - Fatigue [Not Recovered/Not Resolved]
